FAERS Safety Report 15812689 (Version 1)
Quarter: 2019Q1

REPORT INFORMATION
  Report Type: Spontaneous
  Country: US (occurrence: US)
  Receive Date: 20190110
  Receipt Date: 20190110
  Transmission Date: 20190417
  Serious: No
  Sender: FDA-Public Use
  Company Number: None

PATIENT
  Age: 79 Year
  Sex: Female
  Weight: 90.36 kg

DRUGS (6)
  1. DOCU SOFT [Concomitant]
  2. DYAZIDE 37.G/25MG [Concomitant]
  3. VITAMIN D [Concomitant]
     Active Substance: CHOLECALCIFEROL
  4. ASPIRIN LOW DOSE [Concomitant]
     Active Substance: ASPIRIN
  5. GLUCOSAMINE CHONDR COMPLEX [Concomitant]
     Active Substance: CHONDROITIN SULFATE (BOVINE)\GLUCOSAMINE HYDROCHLORIDE
  6. CYCLOPHOSPHAMIDE CAPSULE [Suspect]
     Active Substance: CYCLOPHOSPHAMIDE
     Indication: CHRONIC LYMPHOCYTIC LEUKAEMIA
     Route: 048
     Dates: start: 20160120, end: 20181217

REACTIONS (1)
  - Disease progression [None]

NARRATIVE: CASE EVENT DATE: 20190110
